FAERS Safety Report 20151402 (Version 1)
Quarter: 2021Q4

REPORT INFORMATION
  Report Type: Spontaneous
  Country: CN (occurrence: None)
  Receive Date: 20211206
  Receipt Date: 20211206
  Transmission Date: 20220303
  Serious: Yes (Other)
  Sender: FDA-Public Use
  Company Number: CN-ROCHE-2970031

PATIENT
  Age: 57 Year
  Sex: Female

DRUGS (18)
  1. MABTHERA [Suspect]
     Active Substance: RITUXIMAB
     Indication: Diffuse large B-cell lymphoma stage IV
     Dosage: R-CHOP ON 26 NOV 2020 AND 24 DEC 2020
     Route: 065
     Dates: start: 20201017
  2. MABTHERA [Suspect]
     Active Substance: RITUXIMAB
     Dosage: R-CHOEP
     Route: 065
     Dates: start: 20210122
  3. MABTHERA [Suspect]
     Active Substance: RITUXIMAB
     Dosage: 27/MAR/2021, R2-CHOP, ON DAY 0
     Route: 065
     Dates: start: 20210225
  4. CYCLOPHOSPHAMIDE [Concomitant]
     Active Substance: CYCLOPHOSPHAMIDE
     Indication: Diffuse large B-cell lymphoma stage IV
     Dosage: R-CHOP, ON 26/NOV/2020 AND 24/DEC/2020, R-CHOP, CYCLOPHOSPHAMIDE, DOXORUBICIN REDUCED BY 20%
     Dates: start: 20201017
  5. CYCLOPHOSPHAMIDE [Concomitant]
     Active Substance: CYCLOPHOSPHAMIDE
     Dosage: R-CHOEP
     Dates: start: 20210122
  6. DOXORUBICIN [Concomitant]
     Active Substance: DOXORUBICIN
     Indication: Diffuse large B-cell lymphoma stage IV
     Dosage: ON 26/NOV/2020 AND 24/DEC/2020, R-CHOP, CYCLOPHOSPHAMIDE, DOXORUBICIN REDUCED BY 20%
     Dates: start: 20201017
  7. DOXORUBICIN [Concomitant]
     Active Substance: DOXORUBICIN
     Dosage: R-CHOEP
     Dates: start: 20210122
  8. VINCRISTINE [Concomitant]
     Active Substance: VINCRISTINE
     Indication: Diffuse large B-cell lymphoma stage IV
     Dosage: R-CHOP, ON 26 NOV 2020 AND 24 DEC 2020, R-CHOP
     Dates: start: 20201017
  9. VINCRISTINE [Concomitant]
     Active Substance: VINCRISTINE
     Dosage: R-CHOEP
     Dates: start: 20210122
  10. PREDNISONE [Concomitant]
     Active Substance: PREDNISONE
     Indication: Diffuse large B-cell lymphoma stage IV
     Dosage: R-CHOP, ON 26/NOV/2020 AND 24/DEC/2020
     Dates: start: 20201017
  11. PREDNISONE [Concomitant]
     Active Substance: PREDNISONE
     Dosage: R-CHOEP
     Dates: start: 20210122
  12. ETOPOSIDE [Concomitant]
     Active Substance: ETOPOSIDE
     Indication: Diffuse large B-cell lymphoma stage IV
     Dosage: R-CHOEP
     Dates: start: 20210122
  13. LENALIDOMIDE [Concomitant]
     Active Substance: LENALIDOMIDE
     Indication: Diffuse large B-cell lymphoma stage IV
     Dosage: 27/MAR/2021, R2-CHOP, PER DAY ON DAY 1-21
     Dates: start: 20210225
  14. LENALIDOMIDE [Concomitant]
     Active Substance: LENALIDOMIDE
     Dates: start: 20210812
  15. VINDESINE [Concomitant]
     Active Substance: VINDESINE
     Indication: Diffuse large B-cell lymphoma stage IV
     Dosage: ON 25 FEB 2021 AND 27 MAR 2021, R2-CHOP, ON DAY 1
     Route: 037
     Dates: start: 20210225
  16. IFOSFAMIDE [Concomitant]
     Active Substance: IFOSFAMIDE
     Indication: Diffuse large B-cell lymphoma stage IV
     Dosage: ON 25 FEB 2021 AND 27 MAR 2021, R2-CHOP, ON DAY 1-2
     Route: 037
     Dates: start: 20210225
  17. DOXORUBICIN [Concomitant]
     Active Substance: DOXORUBICIN
     Indication: Diffuse large B-cell lymphoma stage IV
     Dosage: ON 25 FEB 2021 AND 27 MAR 2021, R2-CHOP, ON DAY 1
     Route: 037
     Dates: start: 20210225
  18. PREDNISOLONE [Concomitant]
     Active Substance: PREDNISOLONE
     Indication: Diffuse large B-cell lymphoma stage IV
     Dosage: ON 25 FEB 2021 AND 27 MAR 2021, R2-CHOP, ON DAY 1-5
     Route: 037
     Dates: start: 20210225

REACTIONS (4)
  - Pneumonia [Unknown]
  - Respiratory failure [Unknown]
  - Myelosuppression [Unknown]
  - Gastrointestinal infection [Unknown]
